FAERS Safety Report 5466175-0 (Version None)
Quarter: 2007Q3

REPORT INFORMATION
  Report Type: 
  Country: None (occurrence: None)
  Receive Date: 20070924
  Receipt Date: 20070912
  Transmission Date: 20080115
  Serious: Yes (Other)
  Sender: FDA-Public Use
  Company Number: US-PFIZER INC-2007078053

PATIENT
  Sex: Female
  Weight: 99.09 kg

DRUGS (11)
  1. CHANTIX [Suspect]
     Indication: SMOKING CESSATION THERAPY
     Route: 048
     Dates: start: 20070901, end: 20070911
  2. TRAMADOL HCL [Concomitant]
  3. ANALGESICS [Concomitant]
  4. LIPITOR [Concomitant]
  5. OMEPRAZOLE [Concomitant]
  6. WARFARIN SODIUM [Concomitant]
  7. ISOSORBIDE DINITRATE [Concomitant]
  8. OTHER HYPNOTICS AND SEDATIVES [Concomitant]
  9. AMBIEN [Concomitant]
  10. FEXOFENADINE [Concomitant]
  11. ALBUTEROL [Concomitant]

REACTIONS (7)
  - ABDOMINAL PAIN UPPER [None]
  - CONSTIPATION [None]
  - DISCOMFORT [None]
  - MALAISE [None]
  - PARAESTHESIA [None]
  - VOMITING [None]
  - WRONG TECHNIQUE IN DRUG USAGE PROCESS [None]
